FAERS Safety Report 7199963-3 (Version None)
Quarter: 2010Q4

REPORT INFORMATION
  Report Type: 
  Country: None (occurrence: None)
  Receive Date: 20101228
  Receipt Date: 20101222
  Transmission Date: 20110411
  Serious: Yes (Other)
  Sender: FDA-Public Use
  Company Number: US-PFIZER INC-2010177998

PATIENT
  Sex: Female
  Weight: 111.11 kg

DRUGS (2)
  1. GEODON [Suspect]
     Indication: SCHIZOPHRENIA
     Dosage: 60 MG, 1X/DAY
     Route: 048
     Dates: start: 20050101
  2. GEODON [Suspect]
     Indication: BIPOLAR DISORDER

REACTIONS (2)
  - DIABETES MELLITUS [None]
  - DYSKINESIA [None]
